FAERS Safety Report 25756278 (Version 1)
Quarter: 2025Q3

REPORT INFORMATION
  Report Type: Report from Study
  Country: PH (occurrence: PH)
  Receive Date: 20250903
  Receipt Date: 20250903
  Transmission Date: 20251020
  Serious: Yes (Hospitalization, Other)
  Sender: OTSUKA
  Company Number: PH-MMM-Otsuka-G7OQBLFD

PATIENT

DRUGS (2)
  1. TOLVAPTAN [Suspect]
     Active Substance: TOLVAPTAN
     Indication: Blood creatinine increased
     Dosage: 0.5 DF, QD (15 MG 1/2 TABLET ONCE A DAY ON NON-HD (HEMODIALYSIS) DAYS)
     Route: 048
     Dates: start: 202507
  2. TOLVAPTAN [Suspect]
     Active Substance: TOLVAPTAN
     Indication: Angioplasty

REACTIONS (4)
  - Haemodialysis [Unknown]
  - End stage renal disease [Unknown]
  - Product use in unapproved indication [Unknown]
  - Wrong technique in product usage process [Unknown]

NARRATIVE: CASE EVENT DATE: 20250801
